FAERS Safety Report 15058795 (Version 1)
Quarter: 2018Q2

REPORT INFORMATION
  Report Type: Report from Study
  Country: US (occurrence: US)
  Receive Date: 20180625
  Receipt Date: 20180625
  Transmission Date: 20180711
  Serious: Yes (Other)
  Sender: FDA-Public Use
  Company Number: US-BEH-2018091976

PATIENT
  Age: 44 Year
  Sex: Female

DRUGS (2)
  1. HIZENTRA [Suspect]
     Active Substance: HUMAN IMMUNOGLOBULIN G
     Indication: PRODUCT USED FOR UNKNOWN INDICATION
     Dosage: UNK
     Route: 065
     Dates: start: 201708
  2. ATIVAN [Concomitant]
     Active Substance: LORAZEPAM
     Indication: PREMEDICATION

REACTIONS (8)
  - Oxygen saturation decreased [Unknown]
  - Generalised erythema [Recovered/Resolved]
  - Infusion site erythema [Unknown]
  - Chest pain [Unknown]
  - Migraine [Unknown]
  - Chest discomfort [Unknown]
  - Sinusitis [Unknown]
  - Mast cell activation syndrome [Unknown]

NARRATIVE: CASE EVENT DATE: 201708
